FAERS Safety Report 23323272 (Version 1)
Quarter: 2023Q4

REPORT INFORMATION
  Report Type: Spontaneous
  Country: US (occurrence: None)
  Receive Date: 20231220
  Receipt Date: 20231220
  Transmission Date: 20240109
  Serious: No
  Sender: FDA-Public Use
  Company Number: US-ROCHE-3294934

PATIENT
  Age: 53 Year
  Sex: Female

DRUGS (3)
  1. RITUXAN [Suspect]
     Active Substance: RITUXIMAB
     Indication: Neuromyelitis optica spectrum disorder
     Dosage: ONGOING: NO
     Route: 041
     Dates: start: 2004, end: 202208
  2. RITUXAN [Suspect]
     Active Substance: RITUXIMAB
     Indication: Myelitis transverse
  3. ENSPRYNG [Suspect]
     Active Substance: SATRALIZUMAB-MWGE
     Indication: Neuromyelitis optica spectrum disorder
     Dosage: ONCE A WEEK FOR 3 WEEKS AS A LOADING DOSE AND THEN ONCE EVERY 4 WEEKS.
     Route: 058
     Dates: start: 20230223

REACTIONS (2)
  - Blood test abnormal [Unknown]
  - Headache [Recovering/Resolving]
